FAERS Safety Report 23572192 (Version 1)
Quarter: 2024Q1

REPORT INFORMATION
  Report Type: Spontaneous
  Country: US (occurrence: None)
  Receive Date: 20240227
  Receipt Date: 20240227
  Transmission Date: 20240410
  Serious: No
  Sender: FDA-Public Use
  Company Number: None

PATIENT
  Age: 61 Year
  Sex: Female
  Weight: 80.1 kg

DRUGS (3)
  1. RECLAST [Suspect]
     Active Substance: ZOLEDRONIC ACID
     Indication: Osteoporosis
     Dosage: OTHER FREQUENCY : ONCE PER YEAR;?
     Route: 042
     Dates: start: 20240207
  2. LETROZOLE [Concomitant]
     Active Substance: LETROZOLE
  3. Lisinopril/Chlorothiazide [Concomitant]

REACTIONS (5)
  - Back pain [None]
  - Influenza like illness [None]
  - Eyelid ptosis [None]
  - Eye pain [None]
  - Infusion related reaction [None]

NARRATIVE: CASE EVENT DATE: 20240212
